FAERS Safety Report 4398738-8 (Version None)
Quarter: 2004Q3

REPORT INFORMATION
  Report Type: 
  Country: None (occurrence: None)
  Receive Date: 20040715
  Receipt Date: 20040707
  Transmission Date: 20050211
  Serious: Yes (Other)
  Sender: FDA-Public Use
  Company Number: PHBS2004CO09172

PATIENT
  Age: 25 Year
  Sex: Female

DRUGS (1)
  1. PARLODEL [Suspect]
     Indication: BLOOD PROLACTIN
     Dosage: 1 TABLET, QD
     Route: 048
     Dates: start: 20040704

REACTIONS (4)
  - HEADACHE [None]
  - HYPOTENSION [None]
  - MUSCLE CONTRACTIONS INVOLUNTARY [None]
  - VOMITING [None]
